FAERS Safety Report 7921131-5 (Version None)
Quarter: 2011Q4

REPORT INFORMATION
  Report Type: 
  Country: None (occurrence: None)
  Receive Date: 20111117
  Receipt Date: 20111108
  Transmission Date: 20120403
  Serious: Yes (Other)
  Sender: FDA-Public Use
  Company Number: PHHY2011KP098900

PATIENT
  Age: 84 Year
  Sex: Female
  Weight: 42.7 kg

DRUGS (3)
  1. HYDROCHLOROTHIAZIDE [Suspect]
     Dosage: 12.5 MG, QD
  2. AMLODIPINE BESYLATE [Suspect]
     Dosage: 5 MG, QD
  3. VISIPAQUE [Concomitant]

REACTIONS (6)
  - CONFUSIONAL STATE [None]
  - NAUSEA [None]
  - HYPONATRAEMIA [None]
  - GRAND MAL CONVULSION [None]
  - VOMITING [None]
  - BLOOD GLUCOSE INCREASED [None]
